FAERS Safety Report 9022582 (Version 1)
Quarter: 2013Q1

REPORT INFORMATION
  Report Type: Spontaneous
  Country: US (occurrence: US)
  Receive Date: 20130118
  Receipt Date: 20130118
  Transmission Date: 20140127
  Serious: No
  Sender: FDA-Public Use
  Company Number: US-GLAXOSMITHKLINE-A0989790A

PATIENT
  Age: 47 Year
  Sex: Female

DRUGS (6)
  1. PROMACTA [Suspect]
     Indication: CHRONIC HEPATITIS C
     Dosage: 25MG PER DAY
     Route: 048
     Dates: start: 20120616
  2. XANAX [Concomitant]
  3. ZOLOFT [Concomitant]
  4. MULTIVITAMIN [Concomitant]
  5. PEG-INTRON [Concomitant]
  6. RIBAVIRIN [Concomitant]

REACTIONS (7)
  - Alopecia [Unknown]
  - Vision blurred [Unknown]
  - Tremor [Unknown]
  - Vomiting [Unknown]
  - Rash [Unknown]
  - Depression [Unknown]
  - Fatigue [Unknown]
